FAERS Safety Report 24122884 (Version 2)
Quarter: 2024Q3

REPORT INFORMATION
  Report Type: Spontaneous
  Country: CA (occurrence: CA)
  Receive Date: 20240723
  Receipt Date: 20240916
  Transmission Date: 20241016
  Serious: Yes (Death)
  Sender: CELLTRION
  Company Number: CA-PFIZER INC-202400215125

PATIENT

DRUGS (2)
  1. INFLECTRA [Suspect]
     Active Substance: INFLIXIMAB-DYYB
     Indication: Rheumatoid arthritis
     Dosage: 3 MG/KG
     Route: 042
     Dates: start: 20220303, end: 20220303
  2. INFLECTRA [Suspect]
     Active Substance: INFLIXIMAB-DYYB
     Dosage: 3 MG/KG 0, 2, 6 WEEKS, THEN EVERY 8 WEEKS.
     Route: 042

REACTIONS (1)
  - Death [Fatal]
